FAERS Safety Report 7734136-4 (Version None)
Quarter: 2011Q3

REPORT INFORMATION
  Report Type: 
  Country: None (occurrence: None)
  Receive Date: 20110906
  Receipt Date: 20110906
  Transmission Date: 20111222
  Serious: Yes (Life-Threatening)
  Sender: FDA-Public Use
  Company Number: None

PATIENT
  Age: 87 Year
  Sex: Male
  Weight: 77.9 kg

DRUGS (2)
  1. LORAZEPAM [Suspect]
     Indication: ANXIETY
     Dosage: 2-4 MG ONCE IV
     Route: 042
     Dates: start: 20110701, end: 20110701
  2. FOSPHENYTOIN [Suspect]
     Indication: CONVULSION
     Dosage: 1000 MG ONCE IV
     Route: 042
     Dates: start: 20110701, end: 20110701

REACTIONS (5)
  - ATRIOVENTRICULAR BLOCK COMPLETE [None]
  - HYPOXIA [None]
  - IATROGENIC INJURY [None]
  - BRADYCARDIA [None]
  - BUNDLE BRANCH BLOCK LEFT [None]
